FAERS Safety Report 8601231-7 (Version None)
Quarter: 2012Q3

REPORT INFORMATION
  Report Type: 
  Country: None (occurrence: None)
  Receive Date: 20120817
  Receipt Date: 20120809
  Transmission Date: 20120928
  Serious: Yes (Other)
  Sender: FDA-Public Use
  Company Number: PHHY2012BR055680

PATIENT
  Sex: Female

DRUGS (5)
  1. HYDROCHLOROTHIAZIDE [Concomitant]
     Indication: DIURETIC THERAPY
     Dosage: 1 DF, DAILY
  2. CLONAZEPAM [Concomitant]
     Indication: SLEEP DISORDER
     Dosage: 1 DF, AT NIGHT
  3. CITALOPRAM HYDROBROMIDE [Concomitant]
     Indication: RELAXATION THERAPY
     Dosage: 1 DF, ONE HOUR BEFORE LUNCH
  4. CAPTOPRIL [Concomitant]
     Indication: HYPERTENSION
     Dosage: 1 DF, IN MORNING
  5. DIOVAN HCT [Suspect]
     Indication: HYPERTENSION
     Dosage: 1 DF, DAILY IN MORNING (VALS 160 MG AND 12.5 MG HCTZ)

REACTIONS (6)
  - NECK PAIN [None]
  - DIZZINESS [None]
  - RETCHING [None]
  - ARRHYTHMIA [None]
  - HEADACHE [None]
  - BLOOD PRESSURE ABNORMAL [None]
